FAERS Safety Report 13221864 (Version 3)
Quarter: 2017Q1

REPORT INFORMATION
  Report Type: Spontaneous
  Country: GB (occurrence: GB)
  Receive Date: 20170211
  Receipt Date: 20170222
  Transmission Date: 20170428
  Serious: Yes (Death, Other)
  Sender: FDA-Public Use
  Company Number: GB-SUNOVION-2017SUN000485

PATIENT

DRUGS (15)
  1. LATUDA [Suspect]
     Active Substance: LURASIDONE HYDROCHLORIDE
     Indication: SCHIZOAFFECTIVE DISORDER
     Dosage: UNK
     Route: 048
     Dates: start: 20160219, end: 20160518
  2. ATORVASTATIN [Concomitant]
     Active Substance: ATORVASTATIN
     Indication: HYPERTRIGLYCERIDAEMIA
  3. VALPROATE SEMISODIUM [Concomitant]
     Active Substance: DIVALPROEX SODIUM
     Indication: SCHIZOAFFECTIVE DISORDER
  4. EPLERENONE. [Concomitant]
     Active Substance: EPLERENONE
     Indication: CARDIOMYOPATHY
  5. HUMALOG [Concomitant]
     Active Substance: INSULIN LISPRO
     Indication: TYPE 2 DIABETES MELLITUS
  6. PROMETHAZINE [Concomitant]
     Active Substance: PROMETHAZINE\PROMETHAZINE HYDROCHLORIDE
     Indication: SEDATION
  7. ARIPIPRAZOLE. [Concomitant]
     Active Substance: ARIPIPRAZOLE
     Dosage: UNK
     Dates: start: 20160518, end: 20160518
  8. BISOPROLOL [Concomitant]
     Active Substance: BISOPROLOL
     Indication: HEART RATE ABNORMAL
     Dosage: UNK
     Dates: end: 20160518
  9. LANSOPRAZOLE. [Concomitant]
     Active Substance: LANSOPRAZOLE
     Indication: GASTROOESOPHAGEAL REFLUX DISEASE
  10. PROMETHAZINE [Concomitant]
     Active Substance: PROMETHAZINE\PROMETHAZINE HYDROCHLORIDE
     Indication: AGITATION
  11. EXENATIDE [Concomitant]
     Active Substance: EXENATIDE
     Indication: TYPE 2 DIABETES MELLITUS
  12. CLOZAPINE. [Concomitant]
     Active Substance: CLOZAPINE
     Indication: AGITATION
  13. LOSARTAN. [Concomitant]
     Active Substance: LOSARTAN
     Indication: HEART RATE ABNORMAL
     Dosage: UNK
     Dates: end: 20160518
  14. METFORMIN [Concomitant]
     Active Substance: METFORMIN HYDROCHLORIDE
     Indication: TYPE 2 DIABETES MELLITUS
     Dosage: UNK
     Dates: end: 20160518
  15. DOCUSATE SOD [Concomitant]
     Indication: CONSTIPATION

REACTIONS (2)
  - Blood prolactin increased [Unknown]
  - Myocardial infarction [Fatal]

NARRATIVE: CASE EVENT DATE: 2016
